FAERS Safety Report 9148770 (Version 1)
Quarter: 2013Q1

REPORT INFORMATION
  Report Type: Spontaneous
  Country: SE (occurrence: SE)
  Receive Date: 20130308
  Receipt Date: 20130308
  Transmission Date: 20140127
  Serious: Yes (Other)
  Sender: FDA-Public Use
  Company Number: SE-JNJFOC-20130215167

PATIENT
  Age: 83 Year
  Sex: Female

DRUGS (3)
  1. DUROGESIC [Suspect]
     Indication: BACK PAIN
     Route: 062
  2. KETOGAN [Interacting]
     Indication: PAIN
     Route: 065
     Dates: start: 2012, end: 2012
  3. AN UNKNOWN MEDICATION [Suspect]
     Indication: PAIN
     Route: 065

REACTIONS (3)
  - Depressed level of consciousness [Unknown]
  - Drug interaction [Unknown]
  - Respiratory depression [Unknown]
